FAERS Safety Report 23772472 (Version 1)
Quarter: 2024Q2

REPORT INFORMATION
  Report Type: Spontaneous
  Country: FR (occurrence: FR)
  Receive Date: 20240423
  Receipt Date: 20240423
  Transmission Date: 20240715
  Serious: Yes (Other)
  Sender: FDA-Public Use
  Company Number: None

PATIENT
  Age: 69 Year
  Sex: Male
  Weight: 73 kg

DRUGS (12)
  1. CISPLATIN [Suspect]
     Active Substance: CISPLATIN
     Indication: Cholangiocarcinoma
     Dates: start: 20240201, end: 20240201
  2. GEMCITABINE [Concomitant]
     Active Substance: GEMCITABINE
     Indication: Cholangiocarcinoma
     Dates: start: 20240201, end: 20240201
  3. DURVALUMAB [Concomitant]
     Active Substance: DURVALUMAB
     Indication: Cholangiocarcinoma
     Dates: start: 20240201, end: 20240201
  4. METHYLPREDNISOLONE [Concomitant]
     Active Substance: METHYLPREDNISOLONE
     Indication: Chemotherapy side effect prophylaxis
     Dates: start: 20230921, end: 20230921
  5. ONDANSETRON [Concomitant]
     Active Substance: ONDANSETRON
     Indication: Chemotherapy side effect prophylaxis
     Dates: start: 20240201, end: 20240201
  6. BIONOLYTE GLUCOSE [Concomitant]
     Indication: Chemotherapy side effect prophylaxis
     Dates: start: 20240215, end: 20240215
  7. ONDANSETRON [Concomitant]
     Active Substance: ONDANSETRON
     Indication: Chemotherapy side effect prophylaxis
     Dates: start: 20240215, end: 20240215
  8. ONDANSETRON [Concomitant]
     Active Substance: ONDANSETRON
     Indication: Chemotherapy side effect prophylaxis
     Dates: start: 20230921, end: 20230921
  9. BIONOLYTE GLUCOSE [Concomitant]
     Indication: Chemotherapy side effect prophylaxis
     Dates: start: 20230921, end: 20230921
  10. BIONOLYTE GLUCOSE [Concomitant]
     Indication: Chemotherapy side effect prophylaxis
     Dates: start: 20240201, end: 20240201
  11. METHYLPREDNISOLONE [Concomitant]
     Active Substance: METHYLPREDNISOLONE
     Indication: Chemotherapy side effect prophylaxis
     Dates: start: 20240215, end: 20240215
  12. METHYLPREDNISOLONE [Concomitant]
     Active Substance: METHYLPREDNISOLONE
     Indication: Chemotherapy side effect prophylaxis
     Dates: start: 20240201, end: 20240201

REACTIONS (1)
  - Anaphylactoid reaction [Recovered/Resolved]

NARRATIVE: CASE EVENT DATE: 20240201
